FAERS Safety Report 25720887 (Version 1)
Quarter: 2025Q3

REPORT INFORMATION
  Report Type: Report from Study
  Country: US (occurrence: US)
  Receive Date: 20250825
  Receipt Date: 20250825
  Transmission Date: 20251021
  Serious: No
  Sender: SUNOVION
  Company Number: US-SMPA-2025SPA010719

PATIENT
  Age: 80 Year
  Sex: Male

DRUGS (20)
  1. ORGOVYX [Suspect]
     Active Substance: RELUGOLIX
     Indication: Prostate cancer
     Route: 048
  2. ORGOVYX [Suspect]
     Active Substance: RELUGOLIX
     Route: 048
  3. CLOPIDOGREL [Concomitant]
     Active Substance: CLOPIDOGREL BISULFATE
  4. METOPROLOL SUCCINATE [Concomitant]
     Active Substance: METOPROLOL SUCCINATE
  5. ENTRESTO [Concomitant]
     Active Substance: SACUBITRIL\VALSARTAN
  6. ELIQUIS [Concomitant]
     Active Substance: APIXABAN
  7. FARXIGA [Concomitant]
     Active Substance: DAPAGLIFLOZIN PROPANEDIOL
  8. SIMVASTATIN [Concomitant]
     Active Substance: SIMVASTATIN
  9. TADALAFIL [Concomitant]
     Active Substance: TADALAFIL
  10. TAMSULOSIN [Concomitant]
     Active Substance: TAMSULOSIN
  11. FINASTERIDE [Concomitant]
     Active Substance: FINASTERIDE
  12. BREO ELLIPTA [Concomitant]
     Active Substance: FLUTICASONE FUROATE\VILANTEROL TRIFENATATE
  13. ALBUTEROL SULFATE [Concomitant]
     Active Substance: ALBUTEROL SULFATE
  14. VITAMINS [Concomitant]
     Active Substance: VITAMINS
  15. HERBALS [Concomitant]
     Active Substance: HERBALS
  16. FISH OIL [Concomitant]
     Active Substance: FISH OIL
  17. Moringa [Concomitant]
  18. VITAMIN D3 [Concomitant]
     Active Substance: CHOLECALCIFEROL
  19. Calcium magnesium + zinc [Concomitant]
  20. Beetroot [Concomitant]

REACTIONS (3)
  - Hot flush [Unknown]
  - Constipation [Unknown]
  - Fatigue [Unknown]
